FAERS Safety Report 11425233 (Version 1)
Quarter: 2015Q3

REPORT INFORMATION
  Report Type: Spontaneous
  Country: US (occurrence: US)
  Receive Date: 20150827
  Receipt Date: 20150827
  Transmission Date: 20151125
  Serious: Yes (Hospitalization, Other)
  Sender: FDA-Public Use
  Company Number: US-MYLANLABS-2015M1028243

PATIENT

DRUGS (4)
  1. FENTANYL. [Suspect]
     Active Substance: FENTANYL
     Indication: NERVE INJURY
     Dosage: 100 ?G, QH, CHANGED Q48H
     Route: 062
  2. CYMBALTA [Suspect]
     Active Substance: DULOXETINE HYDROCHLORIDE
     Dosage: UNK
  3. FENTANYL. [Suspect]
     Active Substance: FENTANYL
     Indication: NERVE INJURY
     Dosage: 50 ?G, QH, CHANGED Q48H
     Route: 062
  4. LYRICA [Suspect]
     Active Substance: PREGABALIN
     Indication: NEURALGIA

REACTIONS (6)
  - Seizure [Recovered/Resolved]
  - False negative investigation result [Recovered/Resolved]
  - Wrong technique in product usage process [Recovered/Resolved]
  - Drug effect increased [Recovered/Resolved]
  - Respiratory arrest [Recovered/Resolved]
  - Constipation [Recovered/Resolved]

NARRATIVE: CASE EVENT DATE: 2005
